FAERS Safety Report 7383459-X (Version None)
Quarter: 2011Q1

REPORT INFORMATION
  Report Type: 
  Country: None (occurrence: None)
  Receive Date: 20110330
  Receipt Date: 20110317
  Transmission Date: 20110831
  Serious: Yes (Hospitalization, Other)
  Sender: FDA-Public Use
  Company Number: JP-CELGENEUS-087-21880-10111718

PATIENT
  Sex: Male
  Weight: 50 kg

DRUGS (15)
  1. REVLIMID [Suspect]
     Indication: MULTIPLE MYELOMA
     Dosage: 15 MILLIGRAM
     Route: 048
     Dates: start: 20100826, end: 20100912
  2. REVLIMID [Suspect]
     Dosage: 15 MILLIGRAM
     Route: 048
     Dates: start: 20100923, end: 20101003
  3. LENADEX [Suspect]
     Indication: MULTIPLE MYELOMA
     Dosage: 40 MILLIGRAM
     Route: 048
     Dates: start: 20100826, end: 20100829
  4. MAGMITT [Concomitant]
     Indication: ILL-DEFINED DISORDER
     Dosage: 990 MILLIGRAM
     Route: 048
     Dates: start: 20091109, end: 20101012
  5. REVLIMID [Suspect]
     Dosage: 15 MILLIGRAM
     Route: 048
     Dates: start: 20101210, end: 20101230
  6. LASIX [Concomitant]
     Indication: CARDIAC FAILURE
     Dosage: 20 MILLIGRAM
     Route: 048
     Dates: start: 20101013
  7. LENADEX [Suspect]
     Dosage: 20 MILLIGRAM
     Route: 048
     Dates: start: 20101210, end: 20101231
  8. REVLIMID [Suspect]
     Dosage: 5 MILLIGRAM
     Route: 048
     Dates: start: 20110114, end: 20110117
  9. LENADEX [Suspect]
     Dosage: 20 MILLIGRAM
     Route: 048
     Dates: start: 20100923, end: 20101003
  10. LASIX [Concomitant]
     Indication: HYPERTENSION
     Dosage: 20 MILLIGRAM
     Route: 048
     Dates: start: 20090916, end: 20101012
  11. ARGAMATE [Concomitant]
     Indication: ILL-DEFINED DISORDER
     Dosage: 75 GRAM
     Route: 048
     Dates: start: 20091111, end: 20101012
  12. LENADEX [Suspect]
     Dosage: 20 MILLIGRAM
     Route: 048
     Dates: start: 20101111, end: 20101202
  13. ZYLORIC [Concomitant]
     Indication: RENAL FAILURE CHRONIC
     Dosage: 100 MILLIGRAM
     Route: 048
     Dates: start: 20080820, end: 20101012
  14. ADALAT CC [Concomitant]
     Indication: HYPERTENSION
     Dosage: 20 MILLIGRAM
     Route: 048
     Dates: start: 20100519, end: 20101012
  15. REVLIMID [Suspect]
     Dosage: 15 MILLIGRAM
     Route: 048
     Dates: start: 20101111, end: 20101201

REACTIONS (11)
  - BRONCHITIS [None]
  - NEUTROPENIA [None]
  - HYPOALBUMINAEMIA [None]
  - HAEMOGLOBIN DECREASED [None]
  - HYPOCALCAEMIA [None]
  - GASTRITIS [None]
  - CARDIAC FAILURE CONGESTIVE [None]
  - SEPSIS [None]
  - PNEUMONIA PNEUMOCOCCAL [None]
  - PYREXIA [None]
  - INSOMNIA [None]
